FAERS Safety Report 14437308 (Version 1)
Quarter: 2018Q1

REPORT INFORMATION
  Report Type: Spontaneous
  Country: US (occurrence: US)
  Receive Date: 20180125
  Receipt Date: 20180125
  Transmission Date: 20180509
  Serious: No
  Sender: FDA-Public Use
  Company Number: US-ABBVIE-17K-163-1855616-00

PATIENT
  Age: 17 Year
  Sex: Female
  Weight: 86.26 kg

DRUGS (1)
  1. HUMIRA [Suspect]
     Active Substance: ADALIMUMAB
     Indication: JUVENILE IDIOPATHIC ARTHRITIS
     Route: 058
     Dates: start: 201611

REACTIONS (8)
  - Drug dose omission [Recovered/Resolved]
  - Myalgia [Unknown]
  - Malaise [Recovering/Resolving]
  - Pain [Unknown]
  - Depressed mood [Unknown]
  - Blister [Recovering/Resolving]
  - Fatigue [Unknown]
  - Weight increased [Not Recovered/Not Resolved]

NARRATIVE: CASE EVENT DATE: 20170108
